FAERS Safety Report 7707059-4 (Version None)
Quarter: 2011Q3

REPORT INFORMATION
  Report Type: 
  Country: None (occurrence: None)
  Receive Date: 20110824
  Receipt Date: 20110823
  Transmission Date: 20111222
  Serious: Yes (Death, Hospitalization)
  Sender: FDA-Public Use
  Company Number: US-AMGEN-USASP2011040325

PATIENT
  Sex: Male
  Weight: 106.3 kg

DRUGS (2)
  1. DANAZOL [Concomitant]
     Indication: IDIOPATHIC THROMBOCYTOPENIC PURPURA
  2. NPLATE [Suspect]
     Indication: IDIOPATHIC THROMBOCYTOPENIC PURPURA
     Dosage: 200 A?G, QMO
     Route: 058
     Dates: start: 20110217, end: 20110323

REACTIONS (1)
  - DEATH [None]
